FAERS Safety Report 14802511 (Version 2)
Quarter: 2018Q2

REPORT INFORMATION
  Report Type: Spontaneous
  Country: US (occurrence: US)
  Receive Date: 20180424
  Receipt Date: 20180510
  Transmission Date: 20180711
  Serious: Yes (Hospitalization, Other)
  Sender: FDA-Public Use
  Company Number: US-GLAXOSMITHKLINE-US2018070859

PATIENT
  Age: 93 Year
  Sex: Male

DRUGS (12)
  1. ALBUTEROL NEB [Concomitant]
  2. SINGULAIR [Concomitant]
     Active Substance: MONTELUKAST SODIUM
  3. FLOVENT HFA [Suspect]
     Active Substance: FLUTICASONE PROPIONATE
     Indication: ASTHMA
     Dosage: 2 PUFF(S), BID
  4. ASPIRIN (BABY) [Concomitant]
     Active Substance: ASPIRIN
  5. FUROSEMIDE. [Concomitant]
     Active Substance: FUROSEMIDE
  6. MUCINEX [Concomitant]
     Active Substance: GUAIFENESIN
  7. CARVEDILOL. [Concomitant]
     Active Substance: CARVEDILOL
  8. LEVOTHYROXINE. [Concomitant]
     Active Substance: LEVOTHYROXINE
  9. BREO ELLIPTA [Suspect]
     Active Substance: FLUTICASONE FUROATE\VILANTEROL TRIFENATATE
     Indication: ASTHMA
     Dosage: 1 PUFF(S), 1D
     Dates: start: 201801
  10. FLOMAX [Concomitant]
     Active Substance: TAMSULOSIN HYDROCHLORIDE
  11. LISINOPRIL. [Concomitant]
     Active Substance: LISINOPRIL
  12. CLOPIDOGREL [Concomitant]
     Active Substance: CLOPIDOGREL BISULFATE

REACTIONS (6)
  - Stent placement [Recovered/Resolved]
  - Overdose [Unknown]
  - Transient ischaemic attack [Unknown]
  - Intentional product use issue [Unknown]
  - Sputum retention [Unknown]
  - Drug effect incomplete [Unknown]

NARRATIVE: CASE EVENT DATE: 201801
